FAERS Safety Report 7657201-9 (Version None)
Quarter: 2011Q3

REPORT INFORMATION
  Report Type: 
  Country: None (occurrence: None)
  Receive Date: 20110804
  Receipt Date: 20110801
  Transmission Date: 20111222
  Serious: Yes (Hospitalization)
  Sender: FDA-Public Use
  Company Number: DE-ABBOTT-11P-062-0839545-00

PATIENT
  Age: 22 Year
  Sex: Female
  Weight: 60 kg

DRUGS (2)
  1. HUMIRA [Suspect]
     Indication: COLITIS
  2. HUMIRA [Suspect]
     Indication: CROHN'S DISEASE
     Route: 058
     Dates: start: 20091101, end: 20110704

REACTIONS (7)
  - SYNCOPE [None]
  - FALL [None]
  - ILL-DEFINED DISORDER [None]
  - JOINT INJURY [None]
  - EPILEPSY [None]
  - METAMORPHOPSIA [None]
  - DIZZINESS [None]
